FAERS Safety Report 8994635 (Version 3)
Quarter: 2013Q1

REPORT INFORMATION
  Report Type: Spontaneous
  Country: US (occurrence: None)
  Receive Date: 20121221
  Receipt Date: 20130123
  Transmission Date: 20140127
  Serious: Yes (Other)
  Sender: FDA-Public Use
  Company Number: AUR-APL-2012-05330

PATIENT
  Age: 64 Year
  Sex: Male

DRUGS (3)
  1. FLUCONAZOLE [Suspect]
     Indication: PRODUCT USED FOR UNKNOWN INDICATION
     Dosage: 2 TABLETS
     Route: 048
     Dates: start: 201010, end: 20121214
  2. LOSARTIN (LOSARTAN POTASSIUM) [Concomitant]
  3. LEVOTHYROXINE (LEVOTHYROXINE) [Concomitant]

REACTIONS (12)
  - Liver injury [None]
  - Arthralgia [None]
  - Anxiety [None]
  - Weight decreased [None]
  - Headache [None]
  - Palpitations [None]
  - Rash [None]
  - Insomnia [None]
  - Skin discolouration [None]
  - Alopecia [None]
  - Nail disorder [None]
  - Hair colour changes [None]
